FAERS Safety Report 6255768-9 (Version None)
Quarter: 2009Q3

REPORT INFORMATION
  Report Type: 
  Country: None (occurrence: None)
  Receive Date: 20090701
  Receipt Date: 20090619
  Transmission Date: 20100115
  Serious: Yes (Death)
  Sender: FDA-Public Use
  Company Number: 006553

PATIENT
  Age: 78 Year
  Sex: Male

DRUGS (1)
  1. PLETAL [Suspect]
     Indication: ARTERIOSCLEROSIS OBLITERANS
     Dosage: ORAL
     Route: 048
     Dates: start: 20010101

REACTIONS (15)
  - ARTHRITIS [None]
  - BONE MARROW FAILURE [None]
  - DISORIENTATION [None]
  - DISSEMINATED INTRAVASCULAR COAGULATION [None]
  - EMPHYSEMA [None]
  - HEPATIC FUNCTION ABNORMAL [None]
  - HISTIOCYTOSIS HAEMATOPHAGIC [None]
  - LACUNAR INFARCTION [None]
  - MITRAL VALVE INCOMPETENCE [None]
  - PERICARDIAL EFFUSION [None]
  - PLEURISY [None]
  - PNEUMONIA STAPHYLOCOCCAL [None]
  - PULMONARY FIBROSIS [None]
  - RENAL CYST [None]
  - SYSTEMIC LUPUS ERYTHEMATOSUS [None]
